FAERS Safety Report 5059469-4 (Version None)
Quarter: 2006Q3

REPORT INFORMATION
  Report Type: 
  Country: None (occurrence: None)
  Receive Date: 20060724
  Receipt Date: 20060713
  Transmission Date: 20061208
  Serious: Yes (Other)
  Sender: FDA-Public Use
  Company Number: US-JNJFOC-20060702622

PATIENT
  Sex: Male

DRUGS (10)
  1. REMICADE [Suspect]
     Dosage: THREE INFUSIONS
     Route: 042
  2. REMICADE [Suspect]
     Indication: CROHN'S DISEASE
     Route: 042
  3. B-12 [Concomitant]
     Route: 050
  4. 6-MP [Concomitant]
  5. ZITHROMAX [Concomitant]
  6. OXYCODONE HCL [Concomitant]
  7. CLONOPIN [Concomitant]
  8. NARDIL [Concomitant]
  9. LISINOPRIL [Concomitant]
  10. FLUCONAZOLE [Concomitant]

REACTIONS (8)
  - ARTHRITIS [None]
  - CANDIDIASIS [None]
  - COUGH [None]
  - DYSPNOEA [None]
  - HYPOAESTHESIA [None]
  - OEDEMA PERIPHERAL [None]
  - PARAESTHESIA [None]
  - PYREXIA [None]
